FAERS Safety Report 5621888-2 (Version None)
Quarter: 2008Q1

REPORT INFORMATION
  Report Type: 
  Country: None (occurrence: None)
  Receive Date: 20080211
  Receipt Date: 20071210
  Transmission Date: 20080703
  Serious: Yes (Hospitalization)
  Sender: FDA-Public Use
  Company Number: US-BRISTOL-MYERS SQUIBB COMPANY-14009708

PATIENT
  Sex: Female

DRUGS (1)
  1. IXEMPRA FOR INJ [Suspect]
     Indication: BREAST CANCER METASTATIC
     Dates: start: 20071124, end: 20071124

REACTIONS (2)
  - GENERAL PHYSICAL HEALTH DETERIORATION [None]
  - THROMBOCYTOPENIA [None]
